FAERS Safety Report 7296529-1 (Version None)
Quarter: 2011Q1

REPORT INFORMATION
  Report Type: 
  Country: None (occurrence: None)
  Receive Date: 20110216
  Receipt Date: 20110202
  Transmission Date: 20110831
  Serious: Yes (Hospitalization)
  Sender: FDA-Public Use
  Company Number: DE-GENENTECH-313599

PATIENT
  Sex: Female

DRUGS (3)
  1. LUCENTIS [Suspect]
     Dosage: UNK
     Route: 031
     Dates: start: 20090208
  2. LUCENTIS [Suspect]
     Indication: MACULAR DEGENERATION
     Route: 031
  3. LUCENTIS [Suspect]
     Dosage: UNK
     Route: 031
     Dates: start: 20081203

REACTIONS (2)
  - FALL [None]
  - CERVICAL VERTEBRAL FRACTURE [None]
